FAERS Safety Report 12179166 (Version 2)
Quarter: 2016Q1

REPORT INFORMATION
  Report Type: Report from Study
  Country: US (occurrence: US)
  Receive Date: 20160314
  Receipt Date: 20160318
  Transmission Date: 20160526
  Serious: Yes (Hospitalization)
  Sender: FDA-Public Use
  Company Number: US-ACTELION-A-US2016-132552

PATIENT
  Age: 14 Month
  Sex: Male

DRUGS (4)
  1. TRACLEER [Suspect]
     Active Substance: BOSENTAN
     Indication: PULMONARY HYPERTENSION
     Dosage: UNK, BID
     Route: 048
     Dates: start: 201512
  2. LASIX [Concomitant]
     Active Substance: FUROSEMIDE
     Dosage: 5 MG, TID
  3. REVATIO [Concomitant]
     Active Substance: SILDENAFIL CITRATE
     Dosage: 4 UNK, UNK
  4. ASPIRIN. [Concomitant]
     Active Substance: ASPIRIN
     Dosage: UNK, QD

REACTIONS (4)
  - Endocarditis bacterial [Recovered/Resolved]
  - Oxygen saturation decreased [Recovered/Resolved]
  - Bacterial sepsis [Recovered/Resolved]
  - Cyanosis [Recovered/Resolved]
